FAERS Safety Report 5224995-1 (Version None)
Quarter: 2007Q1

REPORT INFORMATION
  Report Type: 
  Country: None (occurrence: None)
  Receive Date: 20070131
  Receipt Date: 20070123
  Transmission Date: 20070707
  Serious: Yes (Other)
  Sender: FDA-Public Use
  Company Number: CN-BRISTOL-MYERS SQUIBB COMPANY-13657275

PATIENT

DRUGS (1)
  1. CAPTOPRIL [Suspect]
     Indication: HYPERTENSION
     Route: 048

REACTIONS (2)
  - ASTHMA [None]
  - COUGH [None]
